FAERS Safety Report 6855973-4 (Version None)
Quarter: 2010Q3

REPORT INFORMATION
  Report Type: 
  Country: None (occurrence: None)
  Receive Date: 20100716
  Receipt Date: 20100716
  Transmission Date: 20110219
  Serious: No
  Sender: FDA-Public Use
  Company Number: None

PATIENT
  Age: 19 Year
  Sex: Male
  Weight: 108.8633 kg

DRUGS (1)
  1. ADDERALL 10 [Suspect]
     Indication: ATTENTION DEFICIT/HYPERACTIVITY DISORDER
     Dosage: 10 MG 2 X A DAY ORAL
     Route: 048
     Dates: start: 20100621

REACTIONS (4)
  - CHLOROPSIA [None]
  - ERYTHROPSIA [None]
  - HALLUCINATION [None]
  - VISUAL IMPAIRMENT [None]
